FAERS Safety Report 10645890 (Version 5)
Quarter: 2015Q1

REPORT INFORMATION
  Report Type: Spontaneous
  Country: US (occurrence: US)
  Receive Date: 20141211
  Receipt Date: 20150126
  Transmission Date: 20150720
  Serious: Yes (Death, Life-Threatening, Hospitalization, Disabling, Other)
  Sender: FDA-Public Use
  Company Number: US-009507513-1412USA003851

PATIENT
  Age: 55 Year
  Sex: Male
  Weight: 76.64 kg

DRUGS (1)
  1. KEYTRUDA [Suspect]
     Active Substance: PEMBROLIZUMAB
     Indication: MALIGNANT MELANOMA
     Dosage: 70 MG, UNK
     Route: 042
     Dates: start: 20140923

REACTIONS (4)
  - Thrombocytosis [Unknown]
  - Hypovolaemia [Unknown]
  - Urinary retention [Unknown]
  - Malignant neoplasm progression [Fatal]

NARRATIVE: CASE EVENT DATE: 20141014
